FAERS Safety Report 9348446 (Version 1)
Quarter: 2013Q2

REPORT INFORMATION
  Report Type: Spontaneous
  Country: JP (occurrence: JP)
  Receive Date: 20130614
  Receipt Date: 20130614
  Transmission Date: 20140414
  Serious: Yes (Other)
  Sender: FDA-Public Use
  Company Number: JP-ASTELLAS-2013JP006543

PATIENT
  Age: 70 Year
  Sex: Male

DRUGS (2)
  1. TACROLIMUS OINTMENT [Suspect]
     Indication: LICHEN MYXOEDEMATOSUS
     Dosage: UNK
     Route: 061
  2. MOMETASONE FUROATE [Concomitant]
     Indication: LICHEN MYXOEDEMATOSUS
     Route: 061

REACTIONS (2)
  - Drug ineffective for unapproved indication [Unknown]
  - Lichen myxoedematosus [Not Recovered/Not Resolved]
